FAERS Safety Report 11039769 (Version 1)
Quarter: 2015Q2

REPORT INFORMATION
  Report Type: Report from Study
  Country: DE (occurrence: DE)
  Receive Date: 20150416
  Receipt Date: 20150416
  Transmission Date: 20150821
  Serious: Yes (Life-Threatening, Other)
  Sender: FDA-Public Use
  Company Number: PHHO2009DE09640

PATIENT
  Age: 20 Year
  Sex: Female
  Weight: 84 kg

DRUGS (5)
  1. EVEROLIMUS [Suspect]
     Active Substance: EVEROLIMUS
     Dosage: 4 MG, QD
     Route: 048
     Dates: start: 20090730, end: 20090803
  2. COTRIM [Concomitant]
     Active Substance: SULFAMETHOXAZOLE\TRIMETHOPRIM
     Indication: PROPHYLAXIS
     Dosage: UNK
     Route: 065
     Dates: start: 20090423, end: 20090803
  3. EVEROLIMUS [Suspect]
     Active Substance: EVEROLIMUS
     Indication: RENAL TRANSPLANT
     Dosage: 1.5 MG, QD
     Route: 048
     Dates: start: 20090715, end: 20090721
  4. MYFORTIC [Suspect]
     Active Substance: MYCOPHENOLATE SODIUM
     Indication: RENAL TRANSPLANT
     Dosage: 1440 MG, QD
     Route: 048
     Dates: start: 20090425, end: 20090729
  5. EVEROLIMUS [Suspect]
     Active Substance: EVEROLIMUS
     Dosage: 3 MG, QD
     Route: 048
     Dates: start: 20090722, end: 20090729

REACTIONS (2)
  - Leukopenia [Unknown]
  - Agranulocytosis [Recovered/Resolved]

NARRATIVE: CASE EVENT DATE: 20090803
